FAERS Safety Report 14269184 (Version 5)
Quarter: 2020Q4

REPORT INFORMATION
  Report Type: Spontaneous
  Country: IT (occurrence: IT)
  Receive Date: 20171211
  Receipt Date: 20201201
  Transmission Date: 20210113
  Serious: Yes (Death, Other)
  Sender: FDA-Public Use
  Company Number: IT-MYLANLABS-2017M1077268

PATIENT
  Age: 53 Year
  Sex: Male
  Weight: 100 kg

DRUGS (7)
  1. CISPLATIN. [Concomitant]
     Active Substance: CISPLATIN
     Indication: PLEURAL MESOTHELIOMA MALIGNANT
     Dosage: 75 MILLIGRAM/SQ. METER, CYCLE
     Route: 042
     Dates: start: 201404
  2. PEMETREXED. [Suspect]
     Active Substance: PEMETREXED
     Indication: PLEURAL MESOTHELIOMA MALIGNANT
     Dosage: 500 MILLIGRAM/SQ. METER, CYCLE
     Route: 042
     Dates: start: 201404
  3. VINORELBINE [Suspect]
     Active Substance: VINORELBINE TARTRATE
     Indication: PLEURAL MESOTHELIOMA MALIGNANT
     Dosage: UNK
     Route: 065
     Dates: start: 201512
  4. CARBOPLATIN. [Concomitant]
     Active Substance: CARBOPLATIN
     Indication: PLEURAL MESOTHELIOMA MALIGNANT
     Dosage: UNK
     Route: 065
  5. VARGATEF [Suspect]
     Active Substance: NINTEDANIB
     Indication: PLEURAL MESOTHELIOMA MALIGNANT
     Dosage: 200 MILLIGRAM, BID
     Route: 048
     Dates: start: 201404
  6. VARGATEF [Suspect]
     Active Substance: NINTEDANIB
     Dosage: 400 MG, QD (200 MG, BID)
     Route: 048
     Dates: start: 201505
  7. PEMETREXED. [Suspect]
     Active Substance: PEMETREXED
     Dosage: 500 MILLIGRAM/SQ. METER, CYCLE
     Route: 042
     Dates: start: 201505

REACTIONS (4)
  - Malignant neoplasm progression [Fatal]
  - Oedema peripheral [Unknown]
  - Embolism venous [Unknown]
  - Off label use [Unknown]

NARRATIVE: CASE EVENT DATE: 2014
